FAERS Safety Report 5777449-8 (Version None)
Quarter: 2008Q2

REPORT INFORMATION
  Report Type: 
  Country: None (occurrence: None)
  Receive Date: 20080618
  Receipt Date: 20080606
  Transmission Date: 20081010
  Serious: Yes (Other)
  Sender: FDA-Public Use
  Company Number: US-PFIZER INC-2008008097

PATIENT
  Sex: Female
  Weight: 63.5 kg

DRUGS (4)
  1. CHANTIX [Suspect]
     Indication: SMOKING CESSATION THERAPY
     Dates: start: 20071120, end: 20080106
  2. XANAX [Suspect]
  3. LEXAPRO [Concomitant]
     Indication: DEPRESSION
  4. CONTRACEPTIVE, UNSPECIFIED [Concomitant]

REACTIONS (8)
  - DEPRESSION [None]
  - DYSPNOEA [None]
  - INSOMNIA [None]
  - MALAISE [None]
  - MOOD ALTERED [None]
  - NAUSEA [None]
  - PANIC ATTACK [None]
  - THINKING ABNORMAL [None]
